FAERS Safety Report 10094694 (Version 1)
Quarter: 2014Q2

REPORT INFORMATION
  Report Type: Spontaneous
  Country: US (occurrence: None)
  Receive Date: 20140421
  Receipt Date: 20140421
  Transmission Date: 20141212
  Serious: Yes (Hospitalization, Other)
  Sender: FDA-Public Use
  Company Number: None

PATIENT
  Age: 68 Year
  Sex: Male
  Weight: 68.95 kg

DRUGS (2)
  1. AUGMENTIN [Suspect]
     Indication: SINUSITIS
     Dosage: ONE PILL, BID, ORAL,AMOX875/CLAV125.
     Route: 048
     Dates: start: 20140311, end: 20140401
  2. OMEPRAZOLE [Concomitant]

REACTIONS (5)
  - Pruritus [None]
  - Jaundice [None]
  - Chromaturia [None]
  - Fatigue [None]
  - Abnormal faeces [None]
